FAERS Safety Report 4279335-1 (Version None)
Quarter: 2004Q1

REPORT INFORMATION
  Report Type: 
  Country: None (occurrence: None)
  Receive Date: 20040123
  Receipt Date: 20040119
  Transmission Date: 20041129
  Serious: Yes (Hospitalization)
  Sender: FDA-Public Use
  Company Number: TPA2004A00061

PATIENT
  Age: 82 Year
  Sex: Female
  Weight: 51.2565 kg

DRUGS (2)
  1. ACTOS [Suspect]
     Indication: DIABETES MELLITUS NON-INSULIN-DEPENDENT
     Dosage: 1 IN 1 D, PER ORAL
     Route: 048
     Dates: start: 20030919
  2. PAXIL [Concomitant]

REACTIONS (5)
  - FALL [None]
  - PELVIC FRACTURE [None]
  - RENAL DISORDER [None]
  - URINE OUTPUT DECREASED [None]
  - WEIGHT INCREASED [None]
